FAERS Safety Report 4848994-4 (Version None)
Quarter: 2005Q4

REPORT INFORMATION
  Report Type: 
  Country: None (occurrence: None)
  Receive Date: 20051208
  Receipt Date: 20051102
  Transmission Date: 20060501
  Serious: Yes (Other)
  Sender: FDA-Public Use
  Company Number: JP-MERCK-0511USA00872

PATIENT
  Age: 70 Year
  Sex: Female

DRUGS (4)
  1. COZAAR [Suspect]
     Indication: HYPERTENSION
     Route: 048
     Dates: start: 20050411
  2. COSMEGEN [Concomitant]
     Indication: ARTHRITIS
     Route: 042
  3. SULPIRIDE [Concomitant]
     Indication: GASTRITIS
     Route: 048
  4. YOUFENAM [Concomitant]
     Indication: PROPHYLAXIS
     Route: 048

REACTIONS (2)
  - BLOOD CREATINE PHOSPHOKINASE INCREASED [None]
  - MYOGLOBIN BLOOD INCREASED [None]
